FAERS Safety Report 5709919-2 (Version None)
Quarter: 2008Q2

REPORT INFORMATION
  Report Type: 
  Country: None (occurrence: None)
  Receive Date: 20080418
  Receipt Date: 20070529
  Transmission Date: 20081010
  Serious: No
  Sender: FDA-Public Use
  Company Number: US-ASTRAZENECA-2007UW13136

PATIENT
  Sex: Female

DRUGS (2)
  1. TOPROL-XL [Suspect]
     Indication: ARRHYTHMIA
     Route: 048
     Dates: start: 20070510, end: 20070519
  2. PLAQUENIL [Concomitant]

REACTIONS (1)
  - PHOTOPSIA [None]
